FAERS Safety Report 14345402 (Version 4)
Quarter: 2019Q1

REPORT INFORMATION
  Report Type: Report from Study
  Country: US (occurrence: US)
  Receive Date: 20180103
  Receipt Date: 20190206
  Transmission Date: 20190417
  Serious: Yes (Hospitalization)
  Sender: FDA-Public Use
  Company Number: US-ROCHE-2048973

PATIENT
  Age: 65 Year
  Sex: Female
  Weight: 72.5 kg

DRUGS (14)
  1. DOXORUBICIN [Suspect]
     Active Substance: DOXORUBICIN
     Indication: RICHTER^S SYNDROME
     Dosage: ON DAYS 1-4?COMCPLETED CYCLE 1 ON 22/OCT/2018. RECEIVED NEXT CYCLE 2 FROM 19/NOV/2017 TO 23/NOV/2017
     Route: 042
     Dates: start: 20171016
  2. RANITIDINE. [Concomitant]
     Active Substance: RANITIDINE
  3. VENETOCLAX. [Suspect]
     Active Substance: VENETOCLAX
     Indication: RICHTER^S SYNDROME
     Dosage: C2-6?D1-D10?ON 20/DEC/2017, PATIENT RECEIVED LAST DOSE
     Route: 048
     Dates: start: 20171114
  4. FILGRASTIM [Concomitant]
     Active Substance: FILGRASTIM
     Route: 065
     Dates: start: 20171125, end: 20171129
  5. CYCLOPHOSPHAMIDE. [Suspect]
     Active Substance: CYCLOPHOSPHAMIDE
     Indication: RICHTER^S SYNDROME
     Dosage: ON DAY 5?COMCPLETED CYCLE 1 ON 22/OCT/2018. RECEIVED NEXT CYCLE 2 FROM 19/NOV/2017 TO 23/NOV/2017
     Route: 042
     Dates: start: 20171016
  6. LORAZEPAM. [Concomitant]
     Active Substance: LORAZEPAM
  7. BIOTENE MOUTHWASH [Concomitant]
     Active Substance: CETYLPYRIDINIUM CHLORIDE
  8. RITUXIMAB. [Suspect]
     Active Substance: RITUXIMAB
     Indication: RICHTER^S SYNDROME
     Dosage: C1D1-5?COMCPLETED CYCLE 1 ON 22/OCT/2018. RECEIVED NEXT CYCLE 2 FROM 19/NOV/2017 TO 23/NOV/2017?ON 1
     Route: 042
     Dates: start: 20171016
  9. ACYCLOVIR. [Concomitant]
     Active Substance: ACYCLOVIR
  10. LEVOFLOXACIN. [Concomitant]
     Active Substance: LEVOFLOXACIN
  11. ETOPOSIDE. [Suspect]
     Active Substance: ETOPOSIDE
     Indication: RICHTER^S SYNDROME
     Dosage: ON DAYS 1-4?COMCPLETED CYCLE 1 ON 22/OCT/2018. RECEIVED NEXT CYCLE 2 FROM 19/NOV/2017 TO 23/NOV/2017
     Route: 042
     Dates: start: 20171016
  12. PREDNISONE. [Suspect]
     Active Substance: PREDNISONE
     Indication: RICHTER^S SYNDROME
     Dosage: ON DAY 1-5?COMCPLETED CYCLE 1 ON 22/OCT/2018. RECEIVED NEXT CYCLE 2 FROM 19/NOV/2017 TO 23/NOV/2017
     Route: 048
     Dates: start: 20171016
  13. VINCRISTINE [Suspect]
     Active Substance: VINCRISTINE
     Indication: RICHTER^S SYNDROME
     Dosage: COMCPLETED CYCLE 1 ON 22/OCT/2018. RECEIVED NEXT CYCLE 2 FROM 19/NOV/2017 TO 23/NOV/2017
     Route: 042
     Dates: start: 20171016
  14. NYSTATIN. [Concomitant]
     Active Substance: NYSTATIN

REACTIONS (5)
  - Febrile neutropenia [Not Recovered/Not Resolved]
  - Thrombocytopenia [Recovering/Resolving]
  - Febrile neutropenia [Recovered/Resolved]
  - Leukopenia [Recovering/Resolving]
  - Febrile neutropenia [Recovered/Resolved]

NARRATIVE: CASE EVENT DATE: 20171129
